FAERS Safety Report 25235810 (Version 2)
Quarter: 2025Q2

REPORT INFORMATION
  Report Type: Spontaneous
  Country: BR (occurrence: BR)
  Receive Date: 20250424
  Receipt Date: 20250502
  Transmission Date: 20250716
  Serious: Yes (Other)
  Sender: SANDOZ
  Company Number: BR-002147023-NVSC2024BR058501

PATIENT
  Sex: Female
  Weight: 62 kg

DRUGS (16)
  1. KISQALI [Suspect]
     Active Substance: RIBOCICLIB SUCCINATE
     Indication: Breast cancer
     Route: 065
     Dates: start: 20231103
  2. KISQALI [Suspect]
     Active Substance: RIBOCICLIB SUCCINATE
     Dosage: 3 DOSAGE FORM, QD, FOR 3 CONSECUTIVE  WEEKS, FOLLOWED BY 1 WEEK BREAK
     Route: 065
  3. ZOMETA [Suspect]
     Active Substance: ZOLEDRONIC ACID
     Dosage: QUATERLY
     Route: 065
  4. ZOMETA [Suspect]
     Active Substance: ZOLEDRONIC ACID
     Indication: Product used for unknown indication
     Route: 065
     Dates: start: 20230518
  5. AMITRIPTYLINE [Concomitant]
     Active Substance: AMITRIPTYLINE
     Indication: Product used for unknown indication
     Dosage: 1 DOSAGE FORM, QD (AT NIGHT)
     Route: 065
  6. ANASTROZOLE [Concomitant]
     Active Substance: ANASTROZOLE
     Route: 065
  7. ANASTROZOLE [Concomitant]
     Active Substance: ANASTROZOLE
     Indication: Product used for unknown indication
     Route: 065
     Dates: start: 20230810
  8. CALCIUM [Concomitant]
     Active Substance: CALCIUM
     Indication: Product used for unknown indication
     Route: 065
  9. Calman [Concomitant]
     Indication: Product used for unknown indication
     Route: 065
  10. ELIGARD [Concomitant]
     Active Substance: LEUPROLIDE ACETATE
     Indication: Product used for unknown indication
     Route: 065
     Dates: start: 20230809
  11. MORPHINE [Concomitant]
     Active Substance: MORPHINE
     Indication: Product used for unknown indication
     Dosage: Q6H
     Route: 065
  12. PACLITAXEL [Concomitant]
     Active Substance: PACLITAXEL
     Indication: Product used for unknown indication
     Route: 065
     Dates: start: 20230531, end: 20230614
  13. PREGABALIN [Concomitant]
     Active Substance: PREGABALIN
     Indication: Product used for unknown indication
     Dosage: 1 DOSAGE FORM, QD (AT NIGHT)
     Route: 065
  14. TAMOXIFEN [Concomitant]
     Active Substance: TAMOXIFEN
     Indication: Product used for unknown indication
     Route: 065
     Dates: start: 20230706
  15. VENLAFAXINE [Concomitant]
     Active Substance: VENLAFAXINE HYDROCHLORIDE
     Indication: Product used for unknown indication
     Dosage: 1 DOSAGE FORM, QD
     Route: 065
  16. VITAMIN D [Concomitant]
     Active Substance: VITAMIN D NOS
     Indication: Product used for unknown indication
     Route: 065

REACTIONS (29)
  - Pharyngeal injury [Recovering/Resolving]
  - Neuropathy peripheral [Unknown]
  - Neck injury [Recovering/Resolving]
  - Emotional distress [Unknown]
  - Odynophagia [Recovering/Resolving]
  - Concomitant disease aggravated [Not Recovered/Not Resolved]
  - Anhedonia [Unknown]
  - Abulia [Unknown]
  - Affect lability [Unknown]
  - Psychomotor hyperactivity [Unknown]
  - Irritability [Unknown]
  - Dysphagia [Unknown]
  - Blunted affect [Unknown]
  - Odynophagia [Recovering/Resolving]
  - Lymphocytic infiltration [Unknown]
  - Oropharyngeal pain [Recovered/Resolved]
  - Fibromyalgia [Unknown]
  - Panic disorder [Not Recovered/Not Resolved]
  - Weight decreased [Unknown]
  - Weight decreased [Unknown]
  - Anxiety [Not Recovered/Not Resolved]
  - Insomnia [Recovered/Resolved]
  - Diarrhoea [Not Recovered/Not Resolved]
  - Headache [Recovered/Resolved]
  - Dizziness [Unknown]
  - Asthenia [Recovering/Resolving]
  - Arthralgia [Unknown]
  - Dizziness [Unknown]
  - Depression [Not Recovered/Not Resolved]
